FAERS Safety Report 8332794-7 (Version None)
Quarter: 2012Q2

REPORT INFORMATION
  Report Type: 
  Country: None (occurrence: None)
  Receive Date: 20120503
  Receipt Date: 20120427
  Transmission Date: 20120825
  Serious: Yes (Hospitalization, Other)
  Sender: FDA-Public Use
  Company Number: US-PFIZER INC-2011151610

PATIENT
  Sex: Female

DRUGS (5)
  1. CHANTIX [Suspect]
     Indication: SMOKING CESSATION THERAPY
     Dosage: UNK
     Route: 048
     Dates: start: 20070101, end: 20070201
  2. DEPAKOTE [Concomitant]
     Indication: DEPRESSION
     Dosage: 250 MG, 2X/DAY
  3. DEPAKOTE [Concomitant]
     Indication: MOOD SWINGS
  4. SEROQUEL [Concomitant]
     Indication: BIPOLAR DISORDER
     Dosage: 100 MG, UNK
     Dates: start: 20020101
  5. KLONOPIN [Concomitant]
     Indication: ANXIETY
     Dosage: 0.5 MG, 3X/DAY
     Dates: start: 20000101

REACTIONS (2)
  - SUICIDE ATTEMPT [None]
  - SCAR [None]
